FAERS Safety Report 7490101-6 (Version None)
Quarter: 2011Q2

REPORT INFORMATION
  Report Type: 
  Country: None (occurrence: None)
  Receive Date: 20110519
  Receipt Date: 20110516
  Transmission Date: 20111010
  Serious: No
  Sender: FDA-Public Use
  Company Number: US-PFIZER INC-2011105144

PATIENT
  Sex: Male
  Weight: 77.098 kg

DRUGS (4)
  1. LISINOPRIL [Concomitant]
     Indication: HYPERTENSION
     Dosage: UNK
  2. CRESTOR [Concomitant]
     Indication: BLOOD CHOLESTEROL INCREASED
     Dosage: UNK
  3. PRISTIQ [Suspect]
     Indication: DEPRESSION
     Dosage: 50 MG, 1X/DAY
     Route: 048
     Dates: start: 20110314, end: 20110515
  4. DILTIAZEM [Concomitant]
     Indication: ATRIAL FIBRILLATION
     Dosage: UNK

REACTIONS (10)
  - BRADYPHRENIA [None]
  - FEELING ABNORMAL [None]
  - FATIGUE [None]
  - HEADACHE [None]
  - DIARRHOEA [None]
  - NAUSEA [None]
  - DECREASED ACTIVITY [None]
  - ABDOMINAL DISCOMFORT [None]
  - DEPRESSION [None]
  - RESTLESSNESS [None]
